FAERS Safety Report 6287948-0 (Version None)
Quarter: 2009Q3

REPORT INFORMATION
  Report Type: 
  Country: None (occurrence: None)
  Receive Date: 20090729
  Receipt Date: 20090716
  Transmission Date: 20100115
  Serious: Yes (Other)
  Sender: FDA-Public Use
  Company Number: GR-ELI_LILLY_AND_COMPANY-GR200907003375

PATIENT
  Sex: Male
  Weight: 74 kg

DRUGS (11)
  1. PEMETREXED [Suspect]
     Indication: NON-SMALL CELL LUNG CANCER
     Dosage: 500 MG/M2 ON DAY 1 EVERY 21 DAYS
     Route: 042
     Dates: start: 20090303, end: 20090507
  2. CISPLATIN [Suspect]
     Indication: NON-SMALL CELL LUNG CANCER
     Dosage: 75 MG/M2 ON DAY 1 EVERY 21 DAYS
     Route: 042
     Dates: start: 20090303, end: 20090507
  3. BEST SUPPORTIVE CARE [Suspect]
     Indication: NON-SMALL CELL LUNG CANCER
     Dosage: UNK, OTHER
  4. PEMETREXED [Suspect]
     Dosage: UNK, ON DAY 1 EVERY 21 DAYS
     Route: 042
     Dates: start: 20090526
  5. FOLIC ACID [Concomitant]
     Indication: PROPHYLAXIS
     Dates: start: 20090224
  6. VITAMIN B-12 [Concomitant]
     Indication: PROPHYLAXIS
     Dates: start: 20090224
  7. DEXAMETHASONE [Concomitant]
     Indication: PROPHYLAXIS
     Dates: start: 20090302
  8. DIGOXIN [Concomitant]
     Indication: ATRIAL FIBRILLATION
     Dosage: 0.25 UG, UNK
  9. NIFEDIPINE [Concomitant]
     Indication: HYPERTENSION
     Dosage: 5 MG, UNK
  10. CLOPIDOGREL [Concomitant]
     Indication: ATRIAL FIBRILLATION
     Dosage: 75 UG, UNK
     Dates: end: 20090715
  11. ISOSORBIDE MONONITRATE [Concomitant]
     Indication: HYPERTENSION

REACTIONS (1)
  - PULMONARY EMBOLISM [None]
